APPROVED DRUG PRODUCT: AMPHETAMINE SULFATE
Active Ingredient: AMPHETAMINE SULFATE
Strength: 5MG
Dosage Form/Route: TABLET;ORAL
Application: A213583 | Product #001 | TE Code: AA
Applicant: SPECGX LLC
Approved: Jan 22, 2021 | RLD: No | RS: No | Type: RX